FAERS Safety Report 17022270 (Version 1)
Quarter: 2019Q4

REPORT INFORMATION
  Report Type: Spontaneous
  Country: US (occurrence: US)
  Receive Date: 20191008
  Receipt Date: 20191008
  Transmission Date: 20200122
  Serious: No
  Sender: FDA-Public Use
  Company Number: None

PATIENT
  Sex: Female

DRUGS (1)
  1. METHOTREXATE MDV (2ML/VL) 25MG/ML NOVAPLUS/HOSPIRA [Suspect]
     Active Substance: METHOTREXATE
     Indication: PSORIATIC ARTHROPATHY
     Route: 058
     Dates: start: 20190123

REACTIONS (1)
  - Abdominal discomfort [None]
